FAERS Safety Report 9733902 (Version 1)
Quarter: 2013Q4

REPORT INFORMATION
  Report Type: Spontaneous
  Country: TR (occurrence: TR)
  Receive Date: 20131205
  Receipt Date: 20131205
  Transmission Date: 20140711
  Serious: Yes (Other)
  Sender: FDA-Public Use
  Company Number: TR-BAYER-2013-143060

PATIENT
  Age: 22 Year
  Sex: Female

DRUGS (1)
  1. QLAIRISTA [Suspect]
     Indication: CONTRACEPTION
     Dosage: UNK
     Route: 048
     Dates: start: 201311, end: 201311

REACTIONS (5)
  - General physical health deterioration [None]
  - Dermatitis allergic [Recovered/Resolved]
  - Nervous system disorder [Recovered/Resolved]
  - Paraesthesia [Recovered/Resolved]
  - Hypoaesthesia [Recovered/Resolved]
